FAERS Safety Report 4591936-X (Version None)
Quarter: 2005Q1

REPORT INFORMATION
  Report Type: 
  Country: None (occurrence: None)
  Receive Date: 20050222
  Receipt Date: 20050207
  Transmission Date: 20050727
  Serious: Yes (Death, Other)
  Sender: FDA-Public Use
  Company Number: 2004114895

PATIENT
  Sex: Female

DRUGS (3)
  1. GEODON [Suspect]
     Indication: ILL-DEFINED DISORDER
  2. HALOPERIDOL [Suspect]
     Indication: ILL-DEFINED DISORDER
  3. COCAINE (COCAINE) [Suspect]
     Indication: ILL-DEFINED DISORDER

REACTIONS (3)
  - DRUG ABUSER [None]
  - OVERDOSE [None]
  - SUDDEN DEATH [None]
